FAERS Safety Report 7560249-6 (Version None)
Quarter: 2011Q2

REPORT INFORMATION
  Report Type: 
  Country: None (occurrence: None)
  Receive Date: 20110621
  Receipt Date: 20110615
  Transmission Date: 20111010
  Serious: Yes (Other)
  Sender: FDA-Public Use
  Company Number: NL-ABBOTT-11P-114-0727047-00

PATIENT
  Sex: Female
  Weight: 80 kg

DRUGS (12)
  1. DIAZEPAM [Concomitant]
  2. ACETYL SALICYLIC ACID COMPOUND TAB [Concomitant]
     Indication: HYPERTENSION
     Route: 048
     Dates: start: 20030101
  3. SEREVENT: SALMETEROL INHEALER POWDER DISC 50 MCG/DOSE; 60 DOSEE [Concomitant]
     Indication: ASTHMA
     Dosage: FOUR TIMES A DAY, ONE INHALATION
     Route: 055
  4. HYDROKININE [Concomitant]
     Indication: MUSCLE SPASMS
     Route: 048
     Dates: start: 20100901
  5. DIAZEPAM [Concomitant]
     Indication: ANXIOLYTIC THERAPY
     Route: 048
  6. ESOMEPRAZOLE MAGNESIUM [Concomitant]
     Indication: GASTRIC DISORDER
     Route: 048
     Dates: start: 20050101
  7. SERETIDE: SALMETEROL/FLUCTICASON INHEALER POWDER 50/500 DISC 60 DOSES [Concomitant]
     Indication: ASTHMA
     Dosage: FOUR TIMES A DAY, TWO INHALATION
     Route: 055
  8. BUMETANIDE [Concomitant]
     Indication: HYPERTENSION
     Route: 048
     Dates: start: 20030101
  9. ESOMEPRAZOLE MAGNESIUM [Concomitant]
     Indication: PROPHYLAXIS
  10. SIMVASTATIN [Concomitant]
     Indication: BLOOD CHOLESTEROL INCREASED
     Route: 048
     Dates: start: 20050101
  11. HUMIRA [Suspect]
     Indication: RHEUMATOID ARTHRITIS
     Route: 058
     Dates: start: 20110406
  12. LEVOTHYROXINE SODIUM [Concomitant]
     Indication: THYROID DISORDER
     Route: 048
     Dates: start: 20050101

REACTIONS (10)
  - MOBILITY DECREASED [None]
  - PRURITUS [None]
  - CHILLS [None]
  - NERVE COMPRESSION [None]
  - INCREASED APPETITE [None]
  - MYALGIA [None]
  - PARAESTHESIA [None]
  - INSOMNIA [None]
  - MUSCLE SPASMS [None]
  - ALOPECIA [None]
